FAERS Safety Report 9130960 (Version 2)
Quarter: 2013Q1

REPORT INFORMATION
  Report Type: Report from Study
  Country: JP (occurrence: JP)
  Receive Date: 20130301
  Receipt Date: 20130320
  Transmission Date: 20140127
  Serious: Yes (Death, Life-Threatening)
  Sender: FDA-Public Use
  Company Number: JP-UCBSA-079418

PATIENT
  Age: 55 Year
  Sex: Male
  Weight: 45.1 kg

DRUGS (11)
  1. E KEPPRA [Suspect]
     Indication: SIMPLE PARTIAL SEIZURES
     Route: 048
     Dates: start: 20121018, end: 20121130
  2. DEPAKENE [Concomitant]
     Indication: SIMPLE PARTIAL SEIZURES
     Dosage: DAILY DOSE: 1200 MG
     Route: 048
     Dates: end: 20121130
  3. TAKEPRON [Concomitant]
     Indication: PROPHYLAXIS
     Dosage: DAILY DOSE 15 MG
     Route: 048
     Dates: end: 20121130
  4. PRIMPERAN [Concomitant]
     Indication: PROPHYLAXIS
     Dosage: DAILY DOSE: 24 MG
     Route: 048
     Dates: end: 20121114
  5. BLOPRESS [Concomitant]
     Indication: PROPHYLAXIS
     Dosage: DAILY DOSE: 8 MG
     Route: 048
     Dates: end: 20121107
  6. MYSTAN [Concomitant]
     Indication: SIMPLE PARTIAL SEIZURES
     Dosage: DAILY DOSE: 10 MG
     Route: 048
     Dates: end: 20121129
  7. RINDERON [Concomitant]
     Indication: PROPHYLAXIS
     Dosage: 2 MG
     Route: 048
     Dates: end: 20121113
  8. RINDERON [Concomitant]
     Indication: PROPHYLAXIS
     Dosage: 1 MG
     Route: 048
     Dates: start: 20121114, end: 20121120
  9. BENIDIPINE HYDROCHLORIDE [Concomitant]
     Indication: PROPHYLAXIS
     Dosage: DAILY DOSE: 2 MG
     Route: 048
     Dates: end: 20121107
  10. AMSULMYLAN [Concomitant]
     Dosage: DAILY DOSE: 6 MG
     Route: 041
     Dates: end: 20121025
  11. GLUCONSAN K [Concomitant]
     Dosage: DAILY DOSE: 24 MEQ
     Route: 048
     Dates: start: 20121119, end: 20121130

REACTIONS (2)
  - Brain neoplasm [Fatal]
  - Pneumonia aspiration [Not Recovered/Not Resolved]
